FAERS Safety Report 7032285-X (Version None)
Quarter: 2010Q4

REPORT INFORMATION
  Report Type: 
  Country: None (occurrence: None)
  Receive Date: 20101007
  Receipt Date: 20100803
  Transmission Date: 20110411
  Serious: No
  Sender: FDA-Public Use
  Company Number: A0869748A

PATIENT
  Age: 71 Year
  Sex: Male
  Weight: 100 kg

DRUGS (11)
  1. REQUIP XL [Suspect]
     Indication: PARKINSON'S DISEASE
     Dosage: 12MG PER DAY
     Route: 048
     Dates: end: 20100711
  2. REQUIP [Suspect]
     Indication: PARKINSON'S DISEASE
     Route: 065
     Dates: start: 20090709
  3. ATENOLOL [Concomitant]
     Route: 048
  4. DIOVAN [Concomitant]
     Dosage: 80MG PER DAY
     Route: 048
  5. CYMBALTA [Concomitant]
     Indication: DEPRESSION
     Dosage: 60MG PER DAY
     Route: 048
  6. ASPIRIN [Concomitant]
     Dosage: 81MG PER DAY
     Route: 048
  7. LIPITOR [Concomitant]
     Indication: BLOOD CHOLESTEROL INCREASED
     Dosage: 10MG PER DAY
     Route: 048
  8. BUMETANIDE [Concomitant]
     Dosage: 2MG PER DAY
     Route: 048
  9. ALPRAZOLAM [Concomitant]
     Indication: DEPRESSION
     Dosage: .5MG PER DAY
     Route: 048
  10. BUSPIRONE HCL [Concomitant]
     Indication: DEPRESSION
     Dosage: 15MG TWICE PER DAY
     Route: 048
  11. LAMOTRIGINE [Concomitant]
     Indication: DEPRESSION
     Dosage: 25MG TWICE PER DAY
     Route: 048

REACTIONS (7)
  - JOINT SWELLING [None]
  - OEDEMA [None]
  - OEDEMA PERIPHERAL [None]
  - SCROTAL SWELLING [None]
  - SKIN DISORDER [None]
  - SKIN ULCER [None]
  - WEIGHT DECREASED [None]
